FAERS Safety Report 25094700 (Version 1)
Quarter: 2025Q1

REPORT INFORMATION
  Report Type: Spontaneous
  Country: IN (occurrence: IN)
  Receive Date: 20250319
  Receipt Date: 20250319
  Transmission Date: 20250409
  Serious: Yes (Death, Hospitalization)
  Sender: MYLAN
  Company Number: IN-MYLANLABS-2025M1023098

PATIENT
  Age: 11 Year
  Sex: Female

DRUGS (1)
  1. PHENYTOIN [Suspect]
     Active Substance: PHENYTOIN
     Indication: Febrile convulsion

REACTIONS (2)
  - Cardiac arrest [Fatal]
  - Toxic epidermal necrolysis [Fatal]
